FAERS Safety Report 6590244-5 (Version None)
Quarter: 2010Q1

REPORT INFORMATION
  Report Type: 
  Country: None (occurrence: None)
  Receive Date: 20100219
  Receipt Date: 20100208
  Transmission Date: 20100710
  Serious: Yes (Hospitalization)
  Sender: FDA-Public Use
  Company Number: PHHY2010US07650

PATIENT
  Sex: Female

DRUGS (1)
  1. EXJADE [Suspect]
     Dosage: 1000 UNK, DAILY
     Route: 048

REACTIONS (2)
  - STAPHYLOCOCCAL ABSCESS [None]
  - STAPHYLOCOCCAL INFECTION [None]
